FAERS Safety Report 9871008 (Version 2)
Quarter: 2014Q1

REPORT INFORMATION
  Report Type: Spontaneous
  Country: JP (occurrence: None)
  Receive Date: 20140203
  Receipt Date: 20140218
  Transmission Date: 20141002
  Serious: Yes (Other)
  Sender: FDA-Public Use
  Company Number: KAD201401-000121

PATIENT
  Age: 53 Year
  Sex: Female

DRUGS (3)
  1. RIBAVIRIN [Suspect]
  2. PEGINTERFERON LAMBDA [Suspect]
     Dosage: 180 MICROG ONCE WEEKLY
  3. ASUNAPREVIR [Suspect]

REACTIONS (5)
  - Alanine aminotransferase increased [None]
  - Aspartate aminotransferase increased [None]
  - Blood bilirubin increased [None]
  - Abdominal discomfort [None]
  - Lymphadenopathy [None]
